FAERS Safety Report 6780084-6 (Version None)
Quarter: 2010Q2

REPORT INFORMATION
  Report Type: 
  Country: None (occurrence: None)
  Receive Date: 20100618
  Receipt Date: 20100607
  Transmission Date: 20101027
  Serious: No
  Sender: FDA-Public Use
  Company Number: US-TEVA-237670USA

PATIENT
  Sex: Female

DRUGS (2)
  1. SALBUTAMOL SULFATE INHALATION, 0.09 MG [Suspect]
     Indication: ASTHMA
     Route: 055
  2. EPINEPHRINE [Concomitant]
     Indication: ASTHMA

REACTIONS (1)
  - DRUG INEFFECTIVE [None]
